FAERS Safety Report 6029892-X (Version None)
Quarter: 2009Q1

REPORT INFORMATION
  Report Type: 
  Country: None (occurrence: None)
  Receive Date: 20090105
  Receipt Date: 20090105
  Transmission Date: 20090719
  Serious: No
  Sender: FDA-Public Use
  Company Number: None

PATIENT
  Age: 42 Year
  Sex: Female
  Weight: 63.5036 kg

DRUGS (1)
  1. MONISTAT [Suspect]
     Indication: VULVOVAGINAL MYCOTIC INFECTION
     Dosage: 1 OVULE INSERTE INSERT ONCE VAG
     Route: 067
     Dates: start: 20081223, end: 20081230

REACTIONS (3)
  - DYSURIA [None]
  - PAIN [None]
  - UNEVALUABLE EVENT [None]
